FAERS Safety Report 18266101 (Version 2)
Quarter: 2020Q3

REPORT INFORMATION
  Report Type: Report from Study
  Country: BE (occurrence: BE)
  Receive Date: 20200915
  Receipt Date: 20200925
  Transmission Date: 20201103
  Serious: Yes (Other)
  Sender: FDA-Public Use
  Company Number: BE-TEVA-2020-BE-1828393

PATIENT
  Age: 41 Year
  Sex: Male

DRUGS (1)
  1. COPAXONE [Suspect]
     Active Substance: GLATIRAMER ACETATE
     Indication: MULTIPLE SCLEROSIS
     Route: 065
     Dates: start: 20171117

REACTIONS (2)
  - Necrosis [Recovering/Resolving]
  - Post procedural complication [Recovering/Resolving]

NARRATIVE: CASE EVENT DATE: 20200907
